FAERS Safety Report 4609738-4 (Version None)
Quarter: 2005Q1

REPORT INFORMATION
  Report Type: 
  Country: None (occurrence: None)
  Receive Date: 20050314
  Receipt Date: 20050222
  Transmission Date: 20050727
  Serious: No
  Sender: FDA-Public Use
  Company Number: 10418

PATIENT
  Age: 63 Year
  Sex: Female

DRUGS (2)
  1. CARBOPLATIN [Suspect]
     Indication: OVARIAN CANCER
     Dosage: IV
     Route: 042
     Dates: start: 20050217, end: 20050217
  2. PACLITAXEL [Concomitant]

REACTIONS (5)
  - ABDOMINAL PAIN UPPER [None]
  - DYSPNOEA [None]
  - ERYTHEMA [None]
  - PRURITUS [None]
  - VOMITING [None]
